FAERS Safety Report 25974072 (Version 1)
Quarter: 2025Q4

REPORT INFORMATION
  Report Type: Other
  Country: GB (occurrence: GB)
  Receive Date: 20251029
  Receipt Date: 20251029
  Transmission Date: 20260117
  Serious: Yes (Hospitalization, Other)
  Sender: MACLEODS
  Company Number: None

PATIENT

DRUGS (1)
  1. CELECOXIB [Suspect]
     Active Substance: CELECOXIB
     Indication: Procedural pain
     Dosage: 100 MG BD
     Route: 065
     Dates: start: 20250917, end: 20250922

REACTIONS (4)
  - Liver function test increased [Recovered/Resolved]
  - Tenderness [Unknown]
  - Decreased appetite [Unknown]
  - Abdominal pain upper [Unknown]

NARRATIVE: CASE EVENT DATE: 20250922
